FAERS Safety Report 14270063 (Version 1)
Quarter: 2017Q4

REPORT INFORMATION
  Report Type: Spontaneous
  Country: US (occurrence: US)
  Receive Date: 20171211
  Receipt Date: 20171211
  Transmission Date: 20180321
  Serious: Yes (Other)
  Sender: FDA-Public Use
  Company Number: US-OTSUKA-12601993

PATIENT
  Age: 42 Year
  Sex: Male
  Weight: 90.7 kg

DRUGS (5)
  1. COGENTIN [Concomitant]
     Active Substance: BENZTROPINE MESYLATE
     Route: 065
  2. OLANZAPINE. [Concomitant]
     Active Substance: OLANZAPINE
     Route: 065
  3. ABILIFY [Suspect]
     Active Substance: ARIPIPRAZOLE
     Indication: SCHIZOAFFECTIVE DISORDER
     Dosage: INITIAL DOSE: 2.5 MG/DAY, INC TO 15 MG/DAY, DECREASED ON 29-MAY-2004 TO 12.5 MG/DAY
     Route: 048
     Dates: start: 20040309
  4. LITHIUM. [Concomitant]
     Active Substance: LITHIUM
     Route: 065
  5. LITHIUM. [Concomitant]
     Active Substance: LITHIUM

REACTIONS (1)
  - Jaundice [Unknown]

NARRATIVE: CASE EVENT DATE: 20040601
